FAERS Safety Report 16703864 (Version 1)
Quarter: 2019Q3

REPORT INFORMATION
  Report Type: Spontaneous
  Country: US (occurrence: US)
  Receive Date: 20190814
  Receipt Date: 20190814
  Transmission Date: 20191004
  Serious: No
  Sender: FDA-Public Use
  Company Number: US-BAYER-2019-150527

PATIENT
  Sex: Female

DRUGS (3)
  1. MIRENA [Suspect]
     Active Substance: LEVONORGESTREL
     Indication: CONTRACEPTION
  2. MIRENA [Suspect]
     Active Substance: LEVONORGESTREL
     Indication: CONTRACEPTION
     Dosage: 20 MCG/24HR, CONT
     Route: 015
     Dates: start: 20190730, end: 20190730
  3. CYTOTEC [Concomitant]
     Active Substance: MISOPROSTOL

REACTIONS (3)
  - Adverse event [None]
  - Complication of device insertion [None]
  - Uterine cervix stenosis [None]

NARRATIVE: CASE EVENT DATE: 20190730
